FAERS Safety Report 16840490 (Version 6)
Quarter: 2020Q4

REPORT INFORMATION
  Report Type: Report from Study
  Country: FR (occurrence: FR)
  Receive Date: 20190923
  Receipt Date: 20201205
  Transmission Date: 20210113
  Serious: Yes (Hospitalization)
  Sender: FDA-Public Use
  Company Number: PHHO2019FR007827

PATIENT
  Age: 56 Year
  Sex: Female
  Weight: 83 kg

DRUGS (11)
  1. DABRAFENIB [Suspect]
     Active Substance: DABRAFENIB
     Indication: MALIGNANT MELANOMA
     Dosage: 150 MG, BID
     Route: 048
     Dates: start: 20190628, end: 20190722
  2. TRAMETINIB [Suspect]
     Active Substance: TRAMETINIB
     Indication: MALIGNANT MELANOMA
     Dosage: 2 MG, QD
     Route: 048
     Dates: start: 20190628, end: 20190722
  3. METHYLPREDNISOLONE. [Concomitant]
     Active Substance: METHYLPREDNISOLONE
     Indication: HEPATOCELLULAR INJURY
     Dosage: UNK
     Route: 065
     Dates: start: 20190725, end: 20190802
  4. SPASFON [Concomitant]
     Indication: NAUSEA
     Dosage: UNK
     Route: 065
     Dates: start: 20190724, end: 20190724
  5. PRIMPERAN [Concomitant]
     Active Substance: METOCLOPRAMIDE HYDROCHLORIDE
     Indication: NAUSEA
     Dosage: UNK
     Route: 065
     Dates: start: 20190724, end: 20190729
  6. DIFFU K [Concomitant]
     Active Substance: POTASSIUM CHLORIDE
     Indication: BLOOD POTASSIUM DECREASED
     Dosage: UNK
     Route: 065
     Dates: start: 20190726, end: 20190729
  7. ZOPHREN [Concomitant]
     Active Substance: ONDANSETRON
     Indication: NAUSEA
     Dosage: UNK
     Route: 065
     Dates: start: 20190724, end: 20190724
  8. ONDANSETRON [Concomitant]
     Active Substance: ONDANSETRON
     Indication: NAUSEA
     Dosage: UNK
     Route: 065
     Dates: start: 20190729, end: 20190803
  9. EBASTINE [Concomitant]
     Active Substance: EBASTINE
     Indication: SEASONAL ALLERGY
     Dosage: UNK
     Route: 065
     Dates: start: 20161117
  10. CHOLURSO [Concomitant]
     Active Substance: URSODIOL
     Indication: HEPATOCELLULAR INJURY
     Dosage: 250 MG
     Route: 065
     Dates: start: 20190729, end: 20190803
  11. XANAX [Concomitant]
     Active Substance: ALPRAZOLAM
     Indication: ANXIETY
     Dosage: UNK
     Route: 065
     Dates: start: 20190401

REACTIONS (3)
  - Alanine aminotransferase increased [Recovered/Resolved]
  - Pyrexia [Recovered/Resolved]
  - Aspartate aminotransferase increased [Recovered/Resolved]

NARRATIVE: CASE EVENT DATE: 20190723
